FAERS Safety Report 5872651-9 (Version None)
Quarter: 2008Q3

REPORT INFORMATION
  Report Type: 
  Country: None (occurrence: None)
  Receive Date: 20080905
  Receipt Date: 20080826
  Transmission Date: 20090109
  Serious: Yes (Life-Threatening)
  Sender: FDA-Public Use
  Company Number: JP-SANOFI-SYNTHELABO-A01200806927

PATIENT
  Sex: Male

DRUGS (6)
  1. GASMOTIN [Interacting]
     Indication: DRUG USE FOR UNKNOWN INDICATION
     Route: 048
     Dates: start: 20080422
  2. MUCOSOLVAN [Concomitant]
     Indication: DRUG USE FOR UNKNOWN INDICATION
     Route: 048
     Dates: start: 20060901
  3. RISPERDAL [Concomitant]
     Indication: DRUG USE FOR UNKNOWN INDICATION
     Route: 048
     Dates: start: 20080507
  4. FLUTIDE ROTADISK [Interacting]
     Indication: DRUG USE FOR UNKNOWN INDICATION
     Route: 055
     Dates: end: 20040303
  5. LUVOX [Interacting]
     Indication: DRUG USE FOR UNKNOWN INDICATION
     Route: 048
     Dates: start: 20080422
  6. MYSLEE [Suspect]
     Indication: SLEEP DISORDER
     Route: 048
     Dates: start: 20080611, end: 20080611

REACTIONS (8)
  - AGGRESSION [None]
  - AGITATION [None]
  - ANTEROGRADE AMNESIA [None]
  - DISINHIBITION [None]
  - DIZZINESS [None]
  - DRUG INTERACTION [None]
  - HOSTILITY [None]
  - INTENTIONAL SELF-INJURY [None]
